FAERS Safety Report 8279629-9 (Version None)
Quarter: 2012Q2

REPORT INFORMATION
  Report Type: 
  Country: None (occurrence: None)
  Receive Date: 20120412
  Receipt Date: 20120110
  Transmission Date: 20120825
  Serious: No
  Sender: FDA-Public Use
  Company Number: US-ASTRAZENECA-2012SE00573

PATIENT
  Age: 60 Year
  Sex: Female

DRUGS (6)
  1. FLUCONAZOLE [Concomitant]
  2. NEXIUM [Suspect]
     Route: 048
  3. ESTROGEN [Concomitant]
  4. PROCRIT [Concomitant]
  5. MAGNESIUM [Concomitant]
  6. PROGRAF [Concomitant]

REACTIONS (2)
  - DRUG DOSE OMISSION [None]
  - GASTROOESOPHAGEAL REFLUX DISEASE [None]
